FAERS Safety Report 18730296 (Version 7)
Quarter: 2021Q3

REPORT INFORMATION
  Report Type: Spontaneous
  Country: US (occurrence: US)
  Receive Date: 20210112
  Receipt Date: 20210924
  Transmission Date: 20211014
  Serious: Yes (Other)
  Sender: FDA-Public Use
  Company Number: US-PFIZER INC-2021015842

PATIENT
  Age: 58 Year
  Sex: Male

DRUGS (1)
  1. XELJANZ [Suspect]
     Active Substance: TOFACITINIB CITRATE
     Indication: RHEUMATOID ARTHRITIS
     Dosage: 5 MG, 2X/DAY (TWICE DAILY)
     Route: 048
     Dates: start: 202012

REACTIONS (26)
  - Inappropriate schedule of product administration [Unknown]
  - Gait disturbance [Unknown]
  - Syncope [Unknown]
  - Fatigue [Unknown]
  - Product dose omission in error [Unknown]
  - Arthralgia [Recovered/Resolved]
  - Nausea [Unknown]
  - Asthenia [Unknown]
  - Loss of personal independence in daily activities [Unknown]
  - Pain [Unknown]
  - Condition aggravated [Unknown]
  - Arthritis [Unknown]
  - Blood cholesterol increased [Unknown]
  - Dyspnoea [Unknown]
  - Malaise [Unknown]
  - Psychiatric symptom [Unknown]
  - Musculoskeletal stiffness [Not Recovered/Not Resolved]
  - Depressed mood [Unknown]
  - Goitre [Unknown]
  - Skin lesion [Unknown]
  - Heart rate increased [Unknown]
  - Peripheral swelling [Not Recovered/Not Resolved]
  - Pain in extremity [Recovered/Resolved]
  - Arthritis [Not Recovered/Not Resolved]
  - Hypertension [Unknown]
  - Discomfort [Unknown]
